FAERS Safety Report 24332683 (Version 8)
Quarter: 2025Q3

REPORT INFORMATION
  Report Type: Report from Study
  Country: US (occurrence: US)
  Receive Date: 20240918
  Receipt Date: 20250818
  Transmission Date: 20251021
  Serious: Yes (Other)
  Sender: TAKEDA
  Company Number: US-TAKEDA-2024TUS059585

PATIENT
  Sex: Female
  Weight: 78 kg

DRUGS (25)
  1. HUMAN IMMUNOGLOBULIN G [Suspect]
     Active Substance: HUMAN IMMUNOGLOBULIN G
     Indication: Immunodeficiency common variable
     Dosage: 8 GRAM, 1/WEEK
     Dates: start: 20240408
  2. HUMAN IMMUNOGLOBULIN G [Suspect]
     Active Substance: HUMAN IMMUNOGLOBULIN G
     Dosage: 14 GRAM, Q2WEEKS
  3. ACETAMINOPHEN [Concomitant]
     Active Substance: ACETAMINOPHEN
  4. FEXOFENADINE HYDROCHLORIDE [Concomitant]
     Active Substance: FEXOFENADINE HYDROCHLORIDE
  5. EPINEPHRINE [Concomitant]
     Active Substance: EPINEPHRINE
  6. SYNTHROID [Concomitant]
     Active Substance: LEVOTHYROXINE SODIUM
  7. HIZENTRA [Concomitant]
     Active Substance: HUMAN IMMUNOGLOBULIN G
  8. MAGNESIUM CHLORIDE [Concomitant]
     Active Substance: MAGNESIUM CHLORIDE
  9. OCUVITE [Concomitant]
     Active Substance: VITAMINS
  10. NEXIUM [Concomitant]
     Active Substance: ESOMEPRAZOLE MAGNESIUM
  11. LIDOCAINE [Concomitant]
     Active Substance: LIDOCAINE
  12. FLUTICASONE PROPIONATE [Concomitant]
     Active Substance: FLUTICASONE PROPIONATE
  13. PROAIR HFA [Concomitant]
     Active Substance: ALBUTEROL SULFATE
  14. ALLEGRA-D [Concomitant]
     Active Substance: FEXOFENADINE HYDROCHLORIDE\PSEUDOEPHEDRINE HYDROCHLORIDE
  15. MODAFINIL [Concomitant]
     Active Substance: MODAFINIL
  16. HYDROCHLOROTHIAZIDE [Concomitant]
     Active Substance: HYDROCHLOROTHIAZIDE
  17. HERBALS\TURMERIC [Concomitant]
     Active Substance: HERBALS\TURMERIC
  18. DIPHENHYDRAMINE HYDROCHLORIDE [Concomitant]
     Active Substance: DIPHENHYDRAMINE HYDROCHLORIDE
  19. LOSARTAN POTASSIUM [Concomitant]
     Active Substance: LOSARTAN POTASSIUM
  20. SYMBICORT [Concomitant]
     Active Substance: BUDESONIDE\FORMOTEROL FUMARATE DIHYDRATE
  21. VITAMIN C [Concomitant]
     Active Substance: ASCORBIC ACID
  22. VITAMIN D [Concomitant]
     Active Substance: VITAMIN D NOS
  23. PROGESTERONE [Concomitant]
     Active Substance: PROGESTERONE
  24. VITAMIN D3 [Concomitant]
     Active Substance: CHOLECALCIFEROL
  25. POTASSIUM ACETATE [Concomitant]
     Active Substance: POTASSIUM ACETATE

REACTIONS (10)
  - Diverticulitis [Unknown]
  - Colitis [Unknown]
  - Product dose omission issue [Unknown]
  - Nasopharyngitis [Unknown]
  - Upper respiratory tract infection [Unknown]
  - Asthma [Unknown]
  - Feeling abnormal [Unknown]
  - Influenza like illness [Unknown]
  - Malaise [Unknown]
  - Headache [Unknown]
